FAERS Safety Report 5342379-2 (Version None)
Quarter: 2007Q2

REPORT INFORMATION
  Report Type: 
  Country: None (occurrence: None)
  Receive Date: 20070601
  Receipt Date: 20070528
  Transmission Date: 20071010
  Serious: Yes (Hospitalization)
  Sender: FDA-Public Use
  Company Number: FR-PFIZER INC-2004009791

PATIENT
  Age: 79 Year
  Sex: Female

DRUGS (6)
  1. ATARAX [Suspect]
     Indication: URTICARIA
     Dosage: TEXT:1 DF
     Route: 048
  2. ALDACTONE [Suspect]
     Indication: ESSENTIAL HYPERTENSION
     Dosage: DAILY DOSE:75MG
     Route: 048
     Dates: start: 20020130, end: 20020606
  3. CYNOMEL [Suspect]
     Indication: POST PROCEDURAL HYPOTHYROIDISM
     Dosage: TEXT:UNKNOWN
     Route: 048
  4. CLARITIN [Suspect]
     Indication: URTICARIA
     Dosage: TEXT:UNKNOWN
     Route: 048
  5. MINISINTROM [Suspect]
     Indication: ATRIAL FIBRILLATION
     Dosage: TEXT:UNKNOWN
     Route: 048
  6. MINISINTROM [Suspect]
     Indication: ATRIAL FLUTTER

REACTIONS (5)
  - DERMATITIS EXFOLIATIVE [None]
  - ECZEMA [None]
  - PRURITUS [None]
  - RASH ERYTHEMATOUS [None]
  - TOXIC SKIN ERUPTION [None]
